FAERS Safety Report 12766373 (Version 2)
Quarter: 2016Q4

REPORT INFORMATION
  Report Type: Report from Study
  Country: BR (occurrence: BR)
  Receive Date: 20160921
  Receipt Date: 20161004
  Transmission Date: 20170207
  Serious: Yes (Hospitalization, Other)
  Sender: FDA-Public Use
  Company Number: PHHY2016BR129212

PATIENT
  Sex: Female
  Weight: 56 kg

DRUGS (5)
  1. GILENYA [Suspect]
     Active Substance: FINGOLIMOD HYDROCHLORIDE
     Indication: MULTIPLE SCLEROSIS
     Dosage: 0.5 MG, QD, SINCE 3 OR 4 YEARS
     Route: 048
     Dates: start: 2013
  2. CLONAZEPAM. [Concomitant]
     Active Substance: CLONAZEPAM
     Indication: SLEEP DISORDER
     Dosage: 2 DF, QN (FOR 2 YEARS, AT NIGHT)
     Route: 048
  3. DORENE [Concomitant]
     Indication: HEADACHE
     Dosage: 1 DF, QN (FOR 3 YEARS, AT NIGHT)
     Route: 048
  4. CITALOPRAM [Concomitant]
     Active Substance: CITALOPRAM HYDROBROMIDE
     Indication: BIPOLAR DISORDER
     Dosage: 1 DF, QN (FOR 5 YEARS)
     Route: 048
  5. TOPIRAMATO [Concomitant]
     Active Substance: TOPIRAMATE
     Indication: BIPOLAR DISORDER
     Dosage: 75 MG, QN (FOR 1 YEAR, AT NIGHT)
     Route: 048

REACTIONS (6)
  - Cerebral disorder [Unknown]
  - Aphasia [Not Recovered/Not Resolved]
  - Memory impairment [Not Recovered/Not Resolved]
  - Multiple sclerosis relapse [Recovering/Resolving]
  - Dysgraphia [Not Recovered/Not Resolved]
  - Fatigue [Not Recovered/Not Resolved]
